FAERS Safety Report 5563452-X (Version None)
Quarter: 2007Q4

REPORT INFORMATION
  Report Type: 
  Country: None (occurrence: None)
  Receive Date: 20071217
  Receipt Date: 20070529
  Transmission Date: 20080405
  Serious: No
  Sender: FDA-Public Use
  Company Number: US-ASTRAZENECA-2007UW13122

PATIENT
  Age: 79 Year
  Sex: Male
  Weight: 81.6 kg

DRUGS (13)
  1. CRESTOR [Suspect]
     Indication: BLOOD CHOLESTEROL INCREASED
     Route: 048
     Dates: start: 20070501
  2. DIOVAN [Concomitant]
  3. BISOPROLOL [Concomitant]
  4. COUMADIN [Concomitant]
  5. INSPIRA [Concomitant]
  6. AMIODARONE HCL [Concomitant]
  7. MULTIVITAMN [Concomitant]
  8. MAGNESIUM [Concomitant]
  9. SAW PALMETTO [Concomitant]
  10. PREVACID [Concomitant]
  11. PRESERVEX [Concomitant]
  12. CQ10 [Concomitant]
  13. ASPIRIN [Concomitant]
     Route: 048

REACTIONS (2)
  - ILL-DEFINED DISORDER [None]
  - PAIN [None]
